FAERS Safety Report 5218364-8 (Version None)
Quarter: 2007Q1

REPORT INFORMATION
  Report Type: 
  Country: None (occurrence: None)
  Receive Date: 20070124
  Receipt Date: 20070115
  Transmission Date: 20070707
  Serious: Yes (Hospitalization)
  Sender: FDA-Public Use
  Company Number: FR-PFIZER INC-2007004074

PATIENT
  Age: 31 Year
  Sex: Female
  Weight: 67 kg

DRUGS (2)
  1. FRAGMIN [Suspect]
     Indication: EMBOLISM
     Dosage: TEXT:5000U/0.2 ML
     Route: 058
     Dates: start: 20061027, end: 20061103
  2. FRAGMIN [Suspect]
     Indication: ARTERIAL THROMBOSIS

REACTIONS (1)
  - PHLEBITIS [None]
